FAERS Safety Report 11918033 (Version 2)
Quarter: 2016Q3

REPORT INFORMATION
  Report Type: Spontaneous
  Country: GR (occurrence: GR)
  Receive Date: 20160114
  Receipt Date: 20160831
  Transmission Date: 20161109
  Serious: Yes (Other)
  Sender: FDA-Public Use
  Company Number: GR-AMGEN-GRCSP2016003207

PATIENT
  Sex: Female

DRUGS (1)
  1. ENBREL [Suspect]
     Active Substance: ETANERCEPT
     Indication: RHEUMATOID ARTHRITIS
     Dosage: 50 MG, WEEKLY
     Route: 065
     Dates: end: 201512

REACTIONS (2)
  - Spinal meningioma benign [Recovering/Resolving]
  - Disease recurrence [Recovering/Resolving]
